FAERS Safety Report 6383823-1 (Version None)
Quarter: 2009Q3

REPORT INFORMATION
  Report Type: 
  Country: None (occurrence: None)
  Receive Date: 20090929
  Receipt Date: 20090929
  Transmission Date: 20100115
  Serious: Yes (Other)
  Sender: FDA-Public Use
  Company Number: None

PATIENT
  Age: 80 Year
  Sex: Female
  Weight: 91.173 kg

DRUGS (2)
  1. DETROL LA [Suspect]
     Indication: URINARY INCONTINENCE
     Dosage: ONE A DAY
     Dates: start: 20090716, end: 20090915
  2. . [Concomitant]

REACTIONS (9)
  - BLINDNESS TRANSIENT [None]
  - CHEST PAIN [None]
  - DRY MOUTH [None]
  - DYSPHONIA [None]
  - DYSPNOEA [None]
  - HALLUCINATION [None]
  - HEART RATE INCREASED [None]
  - INSOMNIA [None]
  - VISION BLURRED [None]
